FAERS Safety Report 19007098 (Version 1)
Quarter: 2021Q1

REPORT INFORMATION
  Report Type: Spontaneous
  Country: US (occurrence: US)
  Receive Date: 20210313
  Receipt Date: 20210313
  Transmission Date: 20210420
  Serious: No
  Sender: FDA-Public Use
  Company Number: None

PATIENT
  Age: 67 Year
  Sex: Female
  Weight: 113.4 kg

DRUGS (1)
  1. CARBOPLATIN. [Suspect]
     Active Substance: CARBOPLATIN
     Indication: METASTASES TO PERITONEUM
     Dosage: ?          OTHER FREQUENCY:EVERY 21 DAYS;?
     Route: 041
     Dates: start: 20201029

REACTIONS (6)
  - Pruritus [None]
  - Infusion related reaction [None]
  - Chills [None]
  - Flushing [None]
  - Loss of consciousness [None]
  - Throat irritation [None]

NARRATIVE: CASE EVENT DATE: 20201224
